FAERS Safety Report 14951578 (Version 22)
Quarter: 2023Q2

REPORT INFORMATION
  Report Type: Other
  Country: CA (occurrence: None)
  Receive Date: 20180530
  Receipt Date: 20230531
  Transmission Date: 20230722
  Serious: Yes (Other)
  Sender: FDA-Public Use
  Company Number: CA-ROCHE-2130987

PATIENT
  Age: 50 Year
  Sex: Male

DRUGS (7)
  1. OCREVUS [Suspect]
     Active Substance: OCRELIZUMAB
     Indication: Relapsing-remitting multiple sclerosis
     Dosage: 300 MG DAY 0, DAY 14 THEN 600 MG Q6M ;ONGOING: YES
     Route: 042
     Dates: start: 20180525
  2. OCREVUS [Suspect]
     Active Substance: OCRELIZUMAB
     Route: 042
     Dates: start: 20210421, end: 20210501
  3. BENADRYL [Suspect]
     Active Substance: DIPHENHYDRAMINE HYDROCHLORIDE
     Indication: Erythema
     Route: 065
  4. RITALIN [Concomitant]
     Active Substance: METHYLPHENIDATE HYDROCHLORIDE
     Dosage: ONGOING
  5. TELMISARTAN [Concomitant]
     Active Substance: TELMISARTAN
     Dosage: ONGOING
  6. ROSUVASTATIN [Concomitant]
     Active Substance: ROSUVASTATIN
     Dosage: ONGOING
  7. CORTISONE [Concomitant]
     Active Substance: CORTISONE
     Dosage: THREE INJECTIONS OF CORTISONE

REACTIONS (19)
  - Pleurisy [Unknown]
  - Type 2 diabetes mellitus [Not Recovered/Not Resolved]
  - Cough [Recovering/Resolving]
  - Wheezing [Unknown]
  - Fatigue [Not Recovered/Not Resolved]
  - Influenza [Recovered/Resolved]
  - Erythema [Recovered/Resolved]
  - Nasopharyngitis [Recovered/Resolved]
  - Limb discomfort [Not Recovered/Not Resolved]
  - Fatigue [Not Recovered/Not Resolved]
  - Infusion related reaction [Recovered/Resolved]
  - Arthropathy [Unknown]
  - Sinusitis [Recovering/Resolving]
  - Irritability [Not Recovered/Not Resolved]
  - Hypoaesthesia [Not Recovered/Not Resolved]
  - Feeling hot [Recovered/Resolved]
  - Rash [Not Recovered/Not Resolved]
  - Arthralgia [Not Recovered/Not Resolved]
  - Somnolence [Unknown]

NARRATIVE: CASE EVENT DATE: 20181101
